FAERS Safety Report 7254081-0 (Version None)
Quarter: 2011Q1

REPORT INFORMATION
  Report Type: 
  Country: None (occurrence: None)
  Receive Date: 20110129
  Receipt Date: 20100311
  Transmission Date: 20110831
  Serious: No
  Sender: FDA-Public Use
  Company Number: US-ABBOTT-10P-163-0631780-00

PATIENT
  Sex: Male
  Weight: 88.984 kg

DRUGS (6)
  1. LIPITOR [Concomitant]
     Indication: BLOOD CHOLESTEROL INCREASED
  2. BALSALAZIDE DISODIUM [Concomitant]
     Indication: COLITIS ULCERATIVE
  3. PLAVIX [Concomitant]
     Indication: ARTERIOSCLEROSIS
  4. HUMIRA [Suspect]
     Indication: COLITIS ULCERATIVE
     Dates: start: 20090401
  5. HUMIRA [Suspect]
     Indication: CROHN'S DISEASE
  6. ASA ENEMA [Concomitant]
     Indication: COLITIS ULCERATIVE

REACTIONS (2)
  - COLITIS ULCERATIVE [None]
  - WEIGHT INCREASED [None]
